FAERS Safety Report 13620397 (Version 1)
Quarter: 2017Q2

REPORT INFORMATION
  Report Type: Spontaneous
  Country: US (occurrence: US)
  Receive Date: 20170607
  Receipt Date: 20170607
  Transmission Date: 20170830
  Serious: Yes (Life-Threatening, Hospitalization)
  Sender: FDA-Public Use
  Company Number: None

PATIENT
  Age: 19 Year
  Sex: Female
  Weight: 77.3 kg

DRUGS (1)
  1. JUNEL FE 1/20 [Suspect]
     Active Substance: ETHINYL ESTRADIOL\NORETHINDRONE ACETATE
     Indication: CONTRACEPTION
     Dosage: APPROXIMATELY 1 YEAR OF USE (TOOK SIMILAR PRODUCT PRIOR TO)
     Route: 048

REACTIONS (2)
  - Superior sagittal sinus thrombosis [None]
  - Headache [None]

NARRATIVE: CASE EVENT DATE: 20170517
